FAERS Safety Report 6466319-8 (Version None)
Quarter: 2009Q4

REPORT INFORMATION
  Report Type: 
  Country: None (occurrence: None)
  Receive Date: 20091202
  Receipt Date: 20091124
  Transmission Date: 20100525
  Serious: Yes (Hospitalization, Disabling)
  Sender: FDA-Public Use
  Company Number: FR-ROCHE-671223

PATIENT
  Sex: Female
  Weight: 67 kg

DRUGS (1)
  1. METHOXY POLYETHYLENE GLYCOL-EPOETIN BETA [Suspect]
     Route: 058
     Dates: start: 20090621

REACTIONS (1)
  - ISCHAEMIC STROKE [None]
